FAERS Safety Report 7295919-0 (Version None)
Quarter: 2011Q1

REPORT INFORMATION
  Report Type: 
  Country: None (occurrence: None)
  Receive Date: 20110216
  Receipt Date: 20110207
  Transmission Date: 20110831
  Serious: No
  Sender: FDA-Public Use
  Company Number: US-ABBOTT-11P-163-0703353-00

PATIENT
  Sex: Male

DRUGS (1)
  1. SIMCOR [Suspect]
     Indication: PRODUCT USED FOR UNKNOWN INDICATION
     Dosage: DAILY AT BEDTIME

REACTIONS (6)
  - NERVOUSNESS [None]
  - GENERALISED ERYTHEMA [None]
  - DIZZINESS [None]
  - DISCOMFORT [None]
  - PRURITUS GENERALISED [None]
  - MIDDLE INSOMNIA [None]
